FAERS Safety Report 7624378-0 (Version None)
Quarter: 2011Q3

REPORT INFORMATION
  Report Type: 
  Country: None (occurrence: None)
  Receive Date: 20110720
  Receipt Date: 20110712
  Transmission Date: 20111222
  Serious: Yes (Other)
  Sender: FDA-Public Use
  Company Number: US-US-EMD SERONO, INC.-7059741

PATIENT
  Sex: Male

DRUGS (3)
  1. BYSTOLIC [Concomitant]
     Indication: CARDIOVASCULAR EVENT PROPHYLAXIS
  2. UNSPECIFIED ACQUIRED IMMUNE DEFICIENCY SYNDROME MEDICATIONS [Concomitant]
     Indication: ACQUIRED IMMUNODEFICIENCY SYNDROME
  3. EGRIFTA [Suspect]
     Indication: LIPODYSTROPHY ACQUIRED
     Route: 058
     Dates: start: 20110401

REACTIONS (3)
  - VISION BLURRED [None]
  - HYPOTENSION [None]
  - INJECTION SITE PAIN [None]
